FAERS Safety Report 5468730-0 (Version None)
Quarter: 2007Q3

REPORT INFORMATION
  Report Type: 
  Country: None (occurrence: None)
  Receive Date: 20070926
  Receipt Date: 20070917
  Transmission Date: 20080115
  Serious: Yes (Other)
  Sender: FDA-Public Use
  Company Number: US-PFIZER INC-2006122830

PATIENT
  Sex: Female
  Weight: 77.1 kg

DRUGS (4)
  1. LIPITOR [Suspect]
     Indication: LIPIDS INCREASED
     Dates: start: 20050204, end: 20050101
  2. LIPITOR [Suspect]
     Indication: LOW DENSITY LIPOPROTEIN INCREASED
  3. ESTRATEST H.S. [Concomitant]
  4. PROMETRIUM [Concomitant]

REACTIONS (8)
  - AMNESIA [None]
  - ASTHENIA [None]
  - BALANCE DISORDER [None]
  - COGNITIVE DISORDER [None]
  - DEPRESSION [None]
  - DISORIENTATION [None]
  - FATIGUE [None]
  - NEUROPATHY PERIPHERAL [None]
